FAERS Safety Report 13755387 (Version 1)
Quarter: 2017Q3

REPORT INFORMATION
  Report Type: Spontaneous
  Country: US (occurrence: US)
  Receive Date: 20170714
  Receipt Date: 20170714
  Transmission Date: 20171127
  Serious: Yes (Hospitalization)
  Sender: FDA-Public Use
  Company Number: US-MALLINCKRODT-T201702783

PATIENT

DRUGS (1)
  1. FENTANYL TRANSDERMAL SYSTEM [Suspect]
     Active Substance: FENTANYL
     Indication: PAIN
     Dosage: 75 MCG
     Route: 048

REACTIONS (9)
  - Acute kidney injury [None]
  - Weight decreased [Unknown]
  - Sepsis [Unknown]
  - Skin disorder [Unknown]
  - Incorrect route of drug administration [Unknown]
  - Muscle twitching [Unknown]
  - Pruritus [Unknown]
  - Abdominal discomfort [Unknown]
  - Product adhesion issue [Unknown]
